FAERS Safety Report 11111576 (Version 1)
Quarter: 2015Q2

REPORT INFORMATION
  Report Type: Spontaneous
  Country: US (occurrence: US)
  Receive Date: 20150514
  Receipt Date: 20150514
  Transmission Date: 20150821
  Serious: No
  Sender: FDA-Public Use
  Company Number: US-BRISTOL-MYERS SQUIBB COMPANY-BMS-2015-029386

PATIENT
  Age: 50 Year
  Sex: Female

DRUGS (1)
  1. ORENCIA [Suspect]
     Active Substance: ABATACEPT
     Indication: RHEUMATOID ARTHRITIS
     Dosage: 125 MG, QWK
     Route: 058
     Dates: start: 201404

REACTIONS (3)
  - Pyrexia [Not Recovered/Not Resolved]
  - Neuropathy peripheral [Not Recovered/Not Resolved]
  - Oropharyngeal pain [Not Recovered/Not Resolved]

NARRATIVE: CASE EVENT DATE: 20150425
